FAERS Safety Report 9629302 (Version 2)
Quarter: 2013Q4

REPORT INFORMATION
  Report Type: Spontaneous
  Country: US (occurrence: US)
  Receive Date: 20131017
  Receipt Date: 20131030
  Transmission Date: 20140711
  Serious: Yes (Other)
  Sender: FDA-Public Use
  Company Number: US-PFIZER INC-2013294787

PATIENT
  Age: 71 Year
  Sex: Female

DRUGS (13)
  1. BENICAR HCT [Suspect]
     Dosage: 40 MG/12.5 MGDAILY
     Route: 048
  2. COLESTID [Suspect]
     Dosage: 1 G, 2X/DAY
     Route: 048
  3. BUPIVACAINE [Suspect]
     Dosage: 2.998 MG, DAILY
     Route: 065
  4. DESYREL [Suspect]
     Dosage: 100 MG, NIGHTLY
     Route: 048
  5. DILAUDID [Suspect]
     Dosage: 5.996 MG
     Route: 037
  6. DILAUDID [Suspect]
     Dosage: 8 MG, AS NEEDED
     Route: 048
  7. BACLOFEN [Suspect]
     Indication: SURGERY
     Dosage: 59.96 UG, DAILY
     Route: 037
  8. VITAMIN C [Suspect]
     Dosage: 1000 MG, DAILY
     Route: 048
  9. CLONIDINE [Suspect]
     Dosage: 29.98 UG, DAILY
     Route: 065
  10. MIRAPEX [Suspect]
     Dosage: 0.5 MG, 3X/DAY
     Route: 048
  11. SYNTHROID, LEVOTHROID [Suspect]
     Dosage: 75 UG, DAILY (EVERY MORNING BEFORE BREAKFAST)
     Route: 048
  12. GLUCOSAMINE-CHONDROITIN [Suspect]
     Dosage: 500-400MG (3 IN 1 D)
     Route: 048
  13. CALCIUM 600+D3 PO [Suspect]
     Dosage: 1 DF, DAILY
     Route: 048

REACTIONS (7)
  - Drug withdrawal syndrome [Unknown]
  - Arthralgia [Unknown]
  - Back pain [Unknown]
  - Diarrhoea [Unknown]
  - Pain [Unknown]
  - Therapeutic response decreased [Unknown]
  - Bursitis [Unknown]
